FAERS Safety Report 21093993 (Version 6)
Quarter: 2022Q4

REPORT INFORMATION
  Report Type: Spontaneous
  Country: CA (occurrence: CA)
  Receive Date: 20220718
  Receipt Date: 20221228
  Transmission Date: 20230112
  Serious: Yes (Other)
  Sender: FDA-Public Use
  Company Number: CA-PFIZER INC-202101858061

PATIENT
  Age: 59 Year
  Sex: Female

DRUGS (11)
  1. SOMAVERT [Suspect]
     Active Substance: PEGVISOMANT
     Indication: Acromegaly
     Dosage: 10 MG, 1X/DAY
     Route: 058
     Dates: start: 20171026, end: 2017
  2. SOMAVERT [Suspect]
     Active Substance: PEGVISOMANT
     Dosage: 10 MG, 1X/DAY
     Route: 058
     Dates: start: 20171224, end: 2019
  3. SOMAVERT [Suspect]
     Active Substance: PEGVISOMANT
     Dosage: 20 MG, 1X/DAY
     Route: 058
     Dates: start: 2019, end: 20190303
  4. SOMAVERT [Suspect]
     Active Substance: PEGVISOMANT
     Dosage: 20 MG, 1X/DAY
     Route: 058
     Dates: start: 2019, end: 201908
  5. SOMAVERT [Suspect]
     Active Substance: PEGVISOMANT
     Dosage: 25 MG, 1X/DAY
     Route: 058
     Dates: start: 201908
  6. SOMAVERT [Suspect]
     Active Substance: PEGVISOMANT
     Dosage: UNK
     Route: 058
  7. SANDOSTATIN [Concomitant]
     Active Substance: OCTREOTIDE ACETATE
     Dosage: 30 MG EVERY 4 WEEK
     Route: 030
  8. METFORMIN [Concomitant]
     Active Substance: METFORMIN HYDROCHLORIDE
     Dosage: 1 DF
     Route: 065
  9. BROMOCRIPTINE [Concomitant]
     Active Substance: BROMOCRIPTINE
     Dosage: UNK
  10. GLYBURIDE [Concomitant]
     Active Substance: GLYBURIDE
     Dosage: 5 MG, 2X/DAY
     Route: 065
  11. SYNTHROID [Concomitant]
     Active Substance: LEVOTHYROXINE SODIUM
     Dosage: 0.112 MG, 1X/DAY
     Route: 048

REACTIONS (13)
  - Glycosylated haemoglobin increased [Not Recovered/Not Resolved]
  - Poor quality device used [Unknown]
  - Needle issue [Unknown]
  - Lipohypertrophy [Not Recovered/Not Resolved]
  - Injection site pain [Not Recovered/Not Resolved]
  - Injection site haemorrhage [Not Recovered/Not Resolved]
  - Blood glucose abnormal [Not Recovered/Not Resolved]
  - Stress [Unknown]
  - Insulin-like growth factor increased [Unknown]
  - Blood prolactin decreased [Not Recovered/Not Resolved]
  - Blood triglycerides increased [Not Recovered/Not Resolved]
  - Product dose omission in error [Unknown]
  - Product administration error [Unknown]

NARRATIVE: CASE EVENT DATE: 20180809
